FAERS Safety Report 9237561 (Version 1)
Quarter: 2013Q2

REPORT INFORMATION
  Report Type: Spontaneous
  Country: US (occurrence: US)
  Receive Date: 20130418
  Receipt Date: 20130418
  Transmission Date: 20140414
  Serious: Yes (Other)
  Sender: FDA-Public Use
  Company Number: US-AMGEN-USASP2013026279

PATIENT
  Age: 59 Year
  Sex: Female

DRUGS (5)
  1. ENBREL [Suspect]
     Indication: RHEUMATOID ARTHRITIS
     Dosage: 50 MG, QWK
     Dates: start: 20090501
  2. METHOTREXATE [Concomitant]
     Dosage: 25 MG, QWK BY MOUTH
     Route: 048
     Dates: start: 201303, end: 201303
  3. PLAQUENIL                          /00072602/ [Concomitant]
     Dosage: 400 MG, QD
     Route: 048
     Dates: start: 2003
  4. PLAQUENIL                          /00072602/ [Concomitant]
     Dosage: 200 MG, BID BY MOUTH, 8-10 YEARS
  5. RITUXAN [Concomitant]
     Dosage: UNK

REACTIONS (11)
  - Spinal column stenosis [Not Recovered/Not Resolved]
  - White blood cell count decreased [Recovered/Resolved]
  - Chest discomfort [Recovered/Resolved]
  - Dyspnoea [Recovered/Resolved]
  - Pain [Not Recovered/Not Resolved]
  - Arthralgia [Not Recovered/Not Resolved]
  - Fall [Not Recovered/Not Resolved]
  - Pain in extremity [Not Recovered/Not Resolved]
  - Limb injury [Not Recovered/Not Resolved]
  - Alopecia [Recovered/Resolved]
  - Sinusitis [Not Recovered/Not Resolved]
